FAERS Safety Report 6442994-9 (Version None)
Quarter: 2009Q4

REPORT INFORMATION
  Report Type: 
  Country: None (occurrence: None)
  Receive Date: 20091117
  Receipt Date: 20091104
  Transmission Date: 20100525
  Serious: Yes (Other)
  Sender: FDA-Public Use
  Company Number: PHEH2009US15104

PATIENT
  Sex: Female

DRUGS (11)
  1. RECLAST [Suspect]
     Indication: OSTEOPOROSIS
     Dosage: UNK, UNK
     Dates: start: 20080101
  2. RECLAST [Suspect]
     Dosage: ^100 ML^, ONE TIME
     Dates: start: 20091007
  3. RYTHMOL [Concomitant]
     Indication: ARRHYTHMIA
     Dosage: 225 MG, TID
     Route: 048
  4. PULMICORT [Concomitant]
  5. VITAMIN D [Concomitant]
     Indication: OSTEOMALACIA
     Dosage: 50000 IU, QD
     Route: 048
     Dates: start: 20090801
  6. PLAVIX [Concomitant]
  7. ASPIRIN [Concomitant]
  8. ANTIBIOTICS [Concomitant]
  9. ALBUTEROL [Concomitant]
  10. VITAMINS [Concomitant]
  11. SYMBICORT [Concomitant]
     Indication: CHRONIC OBSTRUCTIVE PULMONARY DISEASE
     Dosage: UNK, UNK
     Route: 048

REACTIONS (10)
  - ASTHENIA [None]
  - CHILLS [None]
  - INFLUENZA [None]
  - MOANING [None]
  - MOVEMENT DISORDER [None]
  - MYALGIA [None]
  - NAUSEA [None]
  - PAIN [None]
  - TOOTH DISORDER [None]
  - TOOTHACHE [None]
